FAERS Safety Report 5636898-9 (Version None)
Quarter: 2008Q1

REPORT INFORMATION
  Report Type: 
  Country: None (occurrence: None)
  Receive Date: 20080220
  Receipt Date: 20080220
  Transmission Date: 20080703
  Serious: Yes (Other)
  Sender: FDA-Public Use
  Company Number: None

PATIENT
  Age: 53 Year
  Sex: Female
  Weight: 63.5036 kg

DRUGS (2)
  1. CYMBALTA [Suspect]
     Indication: BACK INJURY
     Dosage: 30 MGS DAILY PO
     Route: 048
     Dates: start: 20071105, end: 20080213
  2. CYMBALTA [Suspect]
     Indication: NEURALGIA
     Dosage: 30 MGS DAILY PO
     Route: 048
     Dates: start: 20071105, end: 20080213

REACTIONS (17)
  - ANXIETY [None]
  - ASTHMA [None]
  - BLOOD PRESSURE INCREASED [None]
  - CRYING [None]
  - DISORIENTATION [None]
  - DIZZINESS [None]
  - FATIGUE [None]
  - HEADACHE [None]
  - ILL-DEFINED DISORDER [None]
  - MALAISE [None]
  - MOVEMENT DISORDER [None]
  - NASOPHARYNGITIS [None]
  - NAUSEA [None]
  - NO THERAPEUTIC RESPONSE [None]
  - TREMOR [None]
  - URINARY INCONTINENCE [None]
  - WITHDRAWAL SYNDROME [None]
